FAERS Safety Report 7381472-X (Version None)
Quarter: 2011Q1

REPORT INFORMATION
  Report Type: 
  Country: None (occurrence: None)
  Receive Date: 20110329
  Receipt Date: 20110323
  Transmission Date: 20110831
  Serious: Yes (Hospitalization, Other)
  Sender: FDA-Public Use
  Company Number: FR-PFIZER INC-2011063882

PATIENT
  Age: 34 Year
  Sex: Male

DRUGS (2)
  1. DOSTINEX [Suspect]
     Indication: HYPERPROLACTINAEMIA
     Dosage: 0.5 MG, WEEKLY
     Route: 048
     Dates: start: 20101101, end: 20110208
  2. LEVOTHYROX [Concomitant]
     Indication: HYPOTHYROIDISM
     Dosage: 75 UG, 1X/DAY
     Route: 048
     Dates: start: 20100901

REACTIONS (4)
  - LIVER FUNCTION TEST ABNORMAL [None]
  - PNEUMONIA ASPIRATION [None]
  - CARDIO-RESPIRATORY ARREST [None]
  - LEFT VENTRICULAR DYSFUNCTION [None]
